FAERS Safety Report 7089047-7 (Version None)
Quarter: 2010Q4

REPORT INFORMATION
  Report Type: 
  Country: None (occurrence: None)
  Receive Date: 20101108
  Receipt Date: 20101101
  Transmission Date: 20110411
  Serious: Yes (Hospitalization)
  Sender: FDA-Public Use
  Company Number: B0601606A

PATIENT
  Sex: Female
  Weight: 71 kg

DRUGS (16)
  1. ALKERAN [Suspect]
     Indication: MULTIPLE MYELOMA
     Dosage: 18MG PER DAY
     Dates: start: 20090924
  2. THALIDOMIDE [Suspect]
     Indication: MULTIPLE MYELOMA
     Dosage: 200MG PER DAY
     Route: 048
     Dates: start: 20090924
  3. PREDNISONE [Suspect]
     Indication: MULTIPLE MYELOMA
     Dosage: 140MG PER DAY
     Dates: start: 20090924
  4. ARIXTRA [Concomitant]
     Indication: THROMBOSIS
     Dosage: 7.5MG PER DAY
     Route: 048
  5. BEFIZAL [Concomitant]
     Indication: DYSLIPIDAEMIA
     Dosage: 400MG PER DAY
     Route: 048
  6. DAFALGAN [Concomitant]
     Indication: DYSLIPIDAEMIA
     Dosage: 4G PER DAY
     Route: 048
  7. ABUFENE [Concomitant]
     Indication: HYPERSENSITIVITY
     Dosage: 800MG TWICE PER DAY
     Route: 048
  8. AERIUS [Concomitant]
     Indication: HYPERSENSITIVITY
     Dosage: 5MG PER DAY
     Route: 048
  9. NEXIUM [Concomitant]
     Indication: GLAUCOMA
     Dosage: 20MG PER DAY
     Route: 048
  10. UNKNOWN DRUG [Concomitant]
     Indication: HYPERTENSION
     Route: 048
  11. OXYCONTIN [Concomitant]
     Indication: BONE PAIN
     Dosage: 20MG PER DAY
     Route: 048
     Dates: start: 20090602
  12. OXYCODONE HCL [Concomitant]
     Dosage: 10MG PER DAY
  13. PACKED RED CELLS [Concomitant]
     Indication: ANAEMIA
     Route: 042
  14. CIFLOX [Concomitant]
  15. TIORFAN [Concomitant]
  16. ULTRA-LEVURE [Concomitant]

REACTIONS (21)
  - ABDOMINAL PAIN [None]
  - ABDOMINAL PAIN UPPER [None]
  - ANAEMIA [None]
  - ASTHENIA [None]
  - BLOOD ALBUMIN DECREASED [None]
  - CARDIAC MURMUR [None]
  - DEHYDRATION [None]
  - DIARRHOEA [None]
  - DYSPEPSIA [None]
  - HAEMATOCRIT DECREASED [None]
  - HAEMOGLOBIN DECREASED [None]
  - HYPOCALCAEMIA [None]
  - MITRAL VALVE INCOMPETENCE [None]
  - NAUSEA [None]
  - NEUTROPENIA [None]
  - PYREXIA [None]
  - RALES [None]
  - RED BLOOD CELL COUNT DECREASED [None]
  - RESPIRATORY DISORDER [None]
  - VOMITING [None]
  - WEIGHT DECREASED [None]
